FAERS Safety Report 14302503 (Version 1)
Quarter: 2017Q4

REPORT INFORMATION
  Report Type: Spontaneous
  Country: US (occurrence: US)
  Receive Date: 20171219
  Receipt Date: 20171219
  Transmission Date: 20180321
  Serious: Yes (Disabling)
  Sender: FDA-Public Use
  Company Number: None

PATIENT
  Age: 48 Year
  Weight: 60.75 kg

DRUGS (17)
  1. CHINESE HERB MIX [Concomitant]
  2. ACCUPUNCTURE [Concomitant]
  3. VITAMIN D3 [Concomitant]
     Active Substance: CHOLECALCIFEROL
  4. PT [Concomitant]
  5. AMINO ACID [Concomitant]
     Active Substance: AMINO ACIDS
  6. UBIQUINOL [Concomitant]
     Active Substance: UBIQUINOL
  7. VITAMIN B12 [Concomitant]
     Active Substance: CYANOCOBALAMIN
  8. LEVAQUIN [Suspect]
     Active Substance: LEVOFLOXACIN
     Indication: BRONCHITIS
     Dosage: ?          OTHER STRENGTH:1;QUANTITY:1 1;?
     Route: 048
     Dates: start: 20170124, end: 20170127
  9. LIMBREL [Concomitant]
     Active Substance: DIETARY SUPPLEMENT\FLAVOCOXID
  10. MAGNESIUM [Concomitant]
     Active Substance: MAGNESIUM
  11. VITAMIN E [Concomitant]
     Active Substance: .ALPHA.-TOCOPHEROL
  12. BONE BROTH APPLE CIDER VINEGAR [Concomitant]
  13. FISH OIL [Concomitant]
     Active Substance: FISH OIL
  14. RESERVATOL [Concomitant]
  15. CHINESE FOOT SOAK FROM TIBET [Concomitant]
  16. NAC [Concomitant]
  17. RAW MINERALS [Concomitant]

REACTIONS (1)
  - Tendonitis [None]

NARRATIVE: CASE EVENT DATE: 20170124
